FAERS Safety Report 23744509 (Version 4)
Quarter: 2024Q4

REPORT INFORMATION
  Report Type: Report from Study
  Country: US (occurrence: US)
  Receive Date: 20240415
  Receipt Date: 20241022
  Transmission Date: 20250115
  Serious: Yes (Other)
  Sender: ABBVIE
  Company Number: US-ABBVIE-5716253

PATIENT
  Age: 62 Year
  Sex: Female

DRUGS (3)
  1. RINVOQ [Suspect]
     Active Substance: UPADACITINIB
     Indication: Psoriatic arthropathy
     Dosage: FIRST ADMIN DATE- UNKNOWN
     Route: 048
     Dates: end: 2023
  2. RINVOQ [Suspect]
     Active Substance: UPADACITINIB
     Indication: Psoriatic arthropathy
     Dosage: DRUG END DATE: 2024
     Route: 048
     Dates: start: 202402
  3. RINVOQ [Suspect]
     Active Substance: UPADACITINIB
     Indication: Psoriatic arthropathy
     Route: 048
     Dates: start: 202408, end: 202409

REACTIONS (11)
  - Knee arthroplasty [Unknown]
  - Surgery [Unknown]
  - Shoulder arthroplasty [Unknown]
  - Bacterial infection [Recovered/Resolved]
  - Surgery [Unknown]
  - Surgery [Unknown]
  - Surgery [Unknown]
  - Arthritis infective [Unknown]
  - Joint effusion [Unknown]
  - Bacterial infection [Unknown]
  - Malaise [Unknown]

NARRATIVE: CASE EVENT DATE: 20230701
